FAERS Safety Report 4988803-6 (Version None)
Quarter: 2006Q2

REPORT INFORMATION
  Report Type: 
  Country: None (occurrence: None)
  Receive Date: 20060502
  Receipt Date: 20051128
  Transmission Date: 20061013
  Serious: Yes (Death, Other)
  Sender: FDA-Public Use
  Company Number: US-MERCK-0511USA04399

PATIENT
  Age: 58 Year
  Sex: Male
  Weight: 100 kg

DRUGS (3)
  1. VIOXX [Suspect]
     Indication: RHEUMATOID ARTHRITIS
     Route: 048
     Dates: start: 20000620, end: 20040521
  2. METHOTREXATE [Concomitant]
     Route: 065
  3. PREDNISONE [Concomitant]
     Route: 065

REACTIONS (6)
  - ACUTE MYOCARDIAL INFARCTION [None]
  - DIZZINESS [None]
  - EAR PAIN [None]
  - HEART RATE DECREASED [None]
  - RESPIRATORY ARREST [None]
  - VENTRICULAR FIBRILLATION [None]
